FAERS Safety Report 10572677 (Version 1)
Quarter: 2014Q4

REPORT INFORMATION
  Report Type: Spontaneous
  Country: BR (occurrence: None)
  Receive Date: 20141106
  Receipt Date: 20141106
  Transmission Date: 20150529
  Serious: Yes (Other)
  Sender: FDA-Public Use
  Company Number: BR-DEXPHARM-20140789

PATIENT
  Sex: Male

DRUGS (5)
  1. NIFEDIPINE. [Suspect]
     Active Substance: NIFEDIPINE
     Indication: HYPERTENSION
     Dosage: INTERVAL 1 IN 1 DAY
  2. DICLOFENAC [Suspect]
     Active Substance: DICLOFENAC
     Indication: MYALGIA
  3. HYDROCHLOROTHIAZIDE. [Suspect]
     Active Substance: HYDROCHLOROTHIAZIDE
     Indication: HYPERTENSION
     Dosage: INTERVAL 1 IN 1 DAY
  4. DOXAZOSIN [Suspect]
     Active Substance: DOXAZOSIN\DOXAZOSIN MESYLATE
     Indication: HYPERTENSION
     Dosage: INTERVAL 1 IN 1 DAY
  5. GLUCANTIME [Suspect]
     Active Substance: MEGLUMINE ANTIMONIATE
     Dosage: SB+5/KG/DAY

REACTIONS (13)
  - Tinnitus [None]
  - Dry skin [None]
  - Rash [None]
  - Arthralgia [None]
  - Tremor [None]
  - Audiogram abnormal [None]
  - Dizziness [None]
  - Decreased appetite [None]
  - Herpes zoster [None]
  - Skin exfoliation [None]
  - Myalgia [None]
  - Weight decreased [None]
  - Hearing impaired [None]
